FAERS Safety Report 5227413-2 (Version None)
Quarter: 2007Q1

REPORT INFORMATION
  Report Type: 
  Country: None (occurrence: None)
  Receive Date: 20070202
  Receipt Date: 20070123
  Transmission Date: 20070707
  Serious: Yes (Other)
  Sender: FDA-Public Use
  Company Number: PHBS2007CH01853

PATIENT

DRUGS (1)
  1. ZOMETA [Suspect]
     Indication: LUNG NEOPLASM MALIGNANT
     Route: 042

REACTIONS (4)
  - ENDODONTIC PROCEDURE [None]
  - OSTEONECROSIS [None]
  - SOFT TISSUE DISORDER [None]
  - SWELLING [None]
